FAERS Safety Report 15729448 (Version 3)
Quarter: 2019Q3

REPORT INFORMATION
  Report Type: Spontaneous
  Country: US (occurrence: US)
  Receive Date: 20181217
  Receipt Date: 20190731
  Transmission Date: 20191004
  Serious: Yes (Other)
  Sender: FDA-Public Use
  Company Number: US-PFIZER INC-2018514080

PATIENT
  Age: 62 Year
  Sex: Female

DRUGS (2)
  1. VIAGRA [Suspect]
     Active Substance: SILDENAFIL CITRATE
     Indication: CIRCULATORY COLLAPSE
     Dosage: 1 TABLET, THREE TIMES A DAY
     Route: 048
  2. VIAGRA [Suspect]
     Active Substance: SILDENAFIL CITRATE
     Indication: FOOD ALLERGY

REACTIONS (7)
  - Malaise [Unknown]
  - Product use in unapproved indication [Unknown]
  - Systemic lupus erythematosus [Unknown]
  - Scleroderma [Unknown]
  - Pain in extremity [Unknown]
  - Product use issue [Unknown]
  - Off label use [Unknown]
